FAERS Safety Report 8277021-4 (Version None)
Quarter: 2012Q2

REPORT INFORMATION
  Report Type: 
  Country: None (occurrence: None)
  Receive Date: 20120412
  Receipt Date: 20120328
  Transmission Date: 20120825
  Serious: Yes (Hospitalization, Other)
  Sender: FDA-Public Use
  Company Number: US-ROCHE-1054345

PATIENT
  Sex: Male

DRUGS (4)
  1. COPEGUS [Suspect]
     Indication: HEPATITIS C
     Route: 065
     Dates: start: 20010202, end: 20020405
  2. COPEGUS [Suspect]
     Dates: start: 20120203
  3. BOCEPREVIR [Suspect]
     Indication: HEPATITIS C
     Route: 065
     Dates: start: 20120302
  4. PEGINTERFERON ALFA-2A [Suspect]
     Indication: HEPATITIS C
     Route: 065
     Dates: start: 20120203

REACTIONS (13)
  - CATARACT [None]
  - GLAUCOMA [None]
  - RETINAL DETACHMENT [None]
  - PAIN [None]
  - EYE HAEMORRHAGE [None]
  - INFLUENZA [None]
  - BLOOD POTASSIUM DECREASED [None]
  - IMPRISONMENT [None]
  - HEPATIC FIBROSIS [None]
  - HEPATIC CIRRHOSIS [None]
  - DEPRESSION [None]
  - POST-TRAUMATIC STRESS DISORDER [None]
  - FEELING COLD [None]
